FAERS Safety Report 25353540 (Version 1)
Quarter: 2025Q2

REPORT INFORMATION
  Report Type: Spontaneous
  Country: US (occurrence: US)
  Receive Date: 20250523
  Receipt Date: 20250523
  Transmission Date: 20250717
  Serious: No
  Sender: ARCUTIS
  Company Number: US-ARCUTIS BIOTHERAPEUTICS INC-2025AER000235

PATIENT
  Age: 29 Year
  Sex: Male

DRUGS (1)
  1. ZORYVE [Suspect]
     Active Substance: ROFLUMILAST
     Indication: Product used for unknown indication
     Dosage: UNK UNK, QHS
     Route: 061
     Dates: start: 2024

REACTIONS (3)
  - Eye swelling [Unknown]
  - Eye pain [Unknown]
  - Accidental exposure to product [Unknown]
